FAERS Safety Report 5574318-3 (Version None)
Quarter: 2007Q4

REPORT INFORMATION
  Report Type: 
  Country: None (occurrence: None)
  Receive Date: 20071227
  Receipt Date: 20071220
  Transmission Date: 20080405
  Serious: Yes (Hospitalization, Other)
  Sender: FDA-Public Use
  Company Number: US-AVENTIS-200718824US

PATIENT
  Sex: Female

DRUGS (9)
  1. LANTUS [Suspect]
     Dosage: DOSE: 20-30
  2. BYETTA [Concomitant]
     Dosage: DOSE: UNK
  3. VICODIN [Concomitant]
     Dosage: DOSE: UNK
  4. MOBIC [Concomitant]
     Dosage: DOSE: UNK
  5. MULTI-VITAMINS [Concomitant]
     Dosage: DOSE: ON AND OFF
  6. AMBIEN [Concomitant]
     Dosage: DOSE QUANTITY: 1
  7. ZOLPIDEM [Concomitant]
     Dosage: DOSE: UNK
     Dates: start: 20070501
  8. XANAX [Concomitant]
     Dosage: DOSE: UNK
  9. ULTRAM [Concomitant]
     Dosage: DOSE: UNK

REACTIONS (15)
  - ANOREXIA [None]
  - BLOOD GLUCOSE INCREASED [None]
  - CHAPPED LIPS [None]
  - DIZZINESS [None]
  - DRY MOUTH [None]
  - DYSGEUSIA [None]
  - FEELING ABNORMAL [None]
  - HYPOAESTHESIA [None]
  - MEDICATION ERROR [None]
  - MUSCLE SPASMS [None]
  - NAUSEA [None]
  - NEOPLASM [None]
  - ORAL DISCOMFORT [None]
  - SCIATICA [None]
  - WEIGHT DECREASED [None]
